FAERS Safety Report 10218572 (Version 1)
Quarter: 2014Q2

REPORT INFORMATION
  Report Type: Spontaneous
  Country: SE (occurrence: SE)
  Receive Date: 20140605
  Receipt Date: 20140605
  Transmission Date: 20141212
  Serious: Yes (Other)
  Sender: FDA-Public Use
  Company Number: SE-TEVA-484261ISR

PATIENT
  Age: 77 Year
  Sex: Female

DRUGS (1)
  1. MONTELUKAST TEVA 4MG [Suspect]
     Indication: ASTHMA
     Route: 048
     Dates: start: 20140324, end: 20140501

REACTIONS (4)
  - Paraesthesia [Recovered/Resolved]
  - Palpitations [Recovered/Resolved]
  - Dizziness [Recovered/Resolved]
  - Product substitution issue [Unknown]
